FAERS Safety Report 13234302 (Version 1)
Quarter: 2017Q1

REPORT INFORMATION
  Report Type: Spontaneous
  Country: US (occurrence: US)
  Receive Date: 20170215
  Receipt Date: 20170215
  Transmission Date: 20170428
  Serious: Yes (Hospitalization)
  Sender: FDA-Public Use
  Company Number: None

PATIENT
  Age: 47 Year
  Sex: Male

DRUGS (1)
  1. CLINDAMYCIN. [Suspect]
     Active Substance: CLINDAMYCIN

REACTIONS (4)
  - Hypokalaemia [None]
  - Clostridium difficile infection [None]
  - Therapy change [None]
  - Blood electrolytes abnormal [None]

NARRATIVE: CASE EVENT DATE: 20150805
